FAERS Safety Report 25859815 (Version 2)
Quarter: 2025Q4

REPORT INFORMATION
  Report Type: Spontaneous
  Country: GB (occurrence: GB)
  Receive Date: 20250929
  Receipt Date: 20251009
  Transmission Date: 20260117
  Serious: Yes (Disabling, Other)
  Sender: GALPHARM INTERNATIONAL
  Company Number: None

PATIENT
  Age: 54 Year
  Sex: Female
  Weight: 101 kg

DRUGS (1)
  1. CETIRIZINE HYDROCHLORIDE [Suspect]
     Active Substance: CETIRIZINE HYDROCHLORIDE
     Indication: Hormone replacement therapy
     Dosage: 10 MG, QD
     Route: 065
     Dates: start: 20240901

REACTIONS (4)
  - Pruritus [Not Recovered/Not Resolved]
  - Restlessness [Unknown]
  - Suicidal ideation [Unknown]
  - Insomnia [Unknown]

NARRATIVE: CASE EVENT DATE: 20250828
